FAERS Safety Report 16292204 (Version 1)
Quarter: 2019Q2

REPORT INFORMATION
  Report Type: Other
  Country: None (occurrence: SE)
  Receive Date: 20190509
  Receipt Date: 20190509
  Transmission Date: 20190711
  Serious: Yes (Hospitalization)
  Sender: FDA-Public Use
  Company Number: SE-MERZ NORTH AMERICA, INC.-19MRZ-00211

PATIENT
  Age: 33 Year
  Sex: Female
  Weight: 70 kg

DRUGS (1)
  1. XEOMIN [Suspect]
     Active Substance: INCOBOTULINUMTOXINA
     Indication: SKIN COSMETIC PROCEDURE
     Dosage: 45 UNITS
     Dates: start: 20190410, end: 20190419

REACTIONS (12)
  - Dizziness [Recovering/Resolving]
  - Dysphagia [Recovering/Resolving]
  - Aphasia [Recovering/Resolving]
  - Tachycardia [Recovering/Resolving]
  - Musculoskeletal stiffness [Recovering/Resolving]
  - Nausea [Recovering/Resolving]
  - Diarrhoea [Recovering/Resolving]
  - Pyrexia [Recovering/Resolving]
  - Blood pressure fluctuation [Recovering/Resolving]
  - Oropharyngeal pain [Recovering/Resolving]
  - Mental impairment [Recovering/Resolving]
  - Heart rate decreased [Recovering/Resolving]

NARRATIVE: CASE EVENT DATE: 201904
